FAERS Safety Report 4340086-6 (Version None)
Quarter: 2004Q2

REPORT INFORMATION
  Report Type: 
  Country: None (occurrence: None)
  Receive Date: 20040415
  Receipt Date: 20040415
  Transmission Date: 20050107
  Serious: Yes (Hospitalization)
  Sender: FDA-Public Use
  Company Number: None

PATIENT
  Sex: Male
  Weight: 100.2449 kg

DRUGS (11)
  1. GATIFLOXACIN [Suspect]
     Indication: EPIDIDYMITIS
     Dosage: 400 MG DAILY ORAL
     Route: 048
     Dates: start: 20040322, end: 20040326
  2. SIMVASTATIN [Concomitant]
  3. RABEPRAZOLE SODIUM [Concomitant]
  4. ATENOLOL [Concomitant]
  5. FLUCINOLIDE OINTMENT [Concomitant]
  6. WARFARIN SODIUM [Concomitant]
  7. PRAZOSIN HCL [Concomitant]
  8. LISINOPRIL [Concomitant]
  9. HYDROCHLOROTHIAZIDE [Concomitant]
  10. APAP TAB [Concomitant]
  11. METFORMIN HCL [Concomitant]

REACTIONS (3)
  - BLOOD GLUCOSE INCREASED [None]
  - POLYDIPSIA [None]
  - POLYURIA [None]
